FAERS Safety Report 16812293 (Version 2)
Quarter: 2019Q4

REPORT INFORMATION
  Report Type: Spontaneous
  Country: US (occurrence: US)
  Receive Date: 20190916
  Receipt Date: 20191011
  Transmission Date: 20200122
  Serious: No
  Sender: FDA-Public Use
  Company Number: US-BRISTOL-MYERS SQUIBB COMPANY-BMS-2019-090118

PATIENT
  Sex: Female

DRUGS (1)
  1. SPRYCEL [Suspect]
     Active Substance: DASATINIB
     Indication: LUNG NEOPLASM MALIGNANT
     Dosage: 100 MILLIGRAM, QD
     Route: 048
     Dates: start: 20190707

REACTIONS (5)
  - Fatigue [Unknown]
  - Productive cough [Unknown]
  - Intentional product use issue [Unknown]
  - Throat irritation [Unknown]
  - Rash [Unknown]
